FAERS Safety Report 6863533-4 (Version None)
Quarter: 2010Q3

REPORT INFORMATION
  Report Type: 
  Country: None (occurrence: None)
  Receive Date: 20100721
  Receipt Date: 20080304
  Transmission Date: 20110219
  Serious: Yes (Disabling, Other)
  Sender: FDA-Public Use
  Company Number: US-PFIZER INC-2008021867

PATIENT
  Age: 45 Year
  Sex: Male

DRUGS (2)
  1. CHANTIX [Suspect]
     Indication: SMOKING CESSATION THERAPY
     Route: 048
     Dates: start: 20080107
  2. BENICAR HCT [Concomitant]
     Indication: HYPERTENSION
     Route: 048

REACTIONS (2)
  - SYNCOPE [None]
  - VENTRICULAR TACHYCARDIA [None]
